FAERS Safety Report 6480211-4 (Version None)
Quarter: 2009Q4

REPORT INFORMATION
  Report Type: 
  Country: None (occurrence: None)
  Receive Date: 20091208
  Receipt Date: 20091201
  Transmission Date: 20100525
  Serious: Yes (Congenital Anomaly, Other)
  Sender: FDA-Public Use
  Company Number: GXKR2009DE12782

PATIENT
  Sex: Female
  Weight: 12 kg

DRUGS (2)
  1. FLUOXETIN 1A PHARMA (NGX) [Suspect]
     Dosage: MATERNAL DOSE: 20MG AT START, 40MG AT END
     Route: 064
  2. IMIPRAMINE [Concomitant]
     Dosage: MATERNAL DOSE 25 MG
     Route: 064

REACTIONS (4)
  - DEVELOPMENTAL DELAY [None]
  - DRUG EXPOSURE DURING PREGNANCY [None]
  - FEEDING DISORDER NEONATAL [None]
  - MUSCULAR WEAKNESS [None]
